FAERS Safety Report 6275724-4 (Version None)
Quarter: 2009Q3

REPORT INFORMATION
  Report Type: 
  Country: None (occurrence: None)
  Receive Date: 20090721
  Receipt Date: 20090718
  Transmission Date: 20100115
  Serious: Yes (Death)
  Sender: FDA-Public Use
  Company Number: PHHY2009MX29783

PATIENT
  Sex: Female

DRUGS (1)
  1. TRILEPTAL [Suspect]
     Indication: ALCOHOLISM
     Dosage: 1 TABLET PER DAY
     Route: 048
     Dates: start: 20051101, end: 20090201

REACTIONS (1)
  - NEOPLASM MALIGNANT [None]
